FAERS Safety Report 9842066 (Version 2)
Quarter: 2014Q1

REPORT INFORMATION
  Report Type: Report from Study
  Country: US (occurrence: US)
  Receive Date: 20140124
  Receipt Date: 20140212
  Transmission Date: 20141002
  Serious: Yes (Other)
  Sender: FDA-Public Use
  Company Number: US-BRISTOL-MYERS SQUIBB COMPANY-20054375

PATIENT
  Age: 36 Year
  Sex: Female

DRUGS (3)
  1. REYATAZ [Suspect]
     Indication: ANTIRETROVIRAL THERAPY
     Route: 048
  2. EPZICOM [Suspect]
     Indication: ANTIRETROVIRAL THERAPY
     Dosage: 1DF:1TAB/CAP
     Route: 048
  3. RETROVIR [Suspect]
     Indication: ANTIRETROVIRAL THERAPY
     Route: 048
     Dates: start: 20131101, end: 20131223

REACTIONS (3)
  - Diabetes mellitus inadequate control [Unknown]
  - Oligohydramnios [Unknown]
  - Pregnancy [Recovered/Resolved]
